FAERS Safety Report 11814916 (Version 2)
Quarter: 2017Q2

REPORT INFORMATION
  Report Type: Spontaneous
  Country: US (occurrence: US)
  Receive Date: 20151209
  Receipt Date: 20170517
  Transmission Date: 20170829
  Serious: No
  Sender: FDA-Public Use
  Company Number: US-SA-2015SA141487

PATIENT
  Age: 64 Year
  Sex: Male

DRUGS (2)
  1. TOUJEO [Suspect]
     Active Substance: INSULIN GLARGINE
     Indication: TYPE 1 DIABETES MELLITUS
     Dosage: DOSE:27 UNIT(S)
     Route: 065
     Dates: start: 201506
  2. SOLOSTAR [Concomitant]
     Active Substance: DEVICE
     Dates: start: 201506

REACTIONS (2)
  - Wrong technique in product usage process [Unknown]
  - Weight increased [Unknown]
